FAERS Safety Report 11146457 (Version 1)
Quarter: 2015Q2

REPORT INFORMATION
  Report Type: Report from Study
  Country: VE (occurrence: VE)
  Receive Date: 20150528
  Receipt Date: 20150528
  Transmission Date: 20150821
  Serious: Yes (Hospitalization, Other)
  Sender: FDA-Public Use
  Company Number: PHHY2015VE064085

PATIENT
  Age: 50 Year
  Sex: Female

DRUGS (5)
  1. APROVEL [Concomitant]
     Active Substance: IRBESARTAN
     Indication: TENSION
     Dosage: 300 MG, QD
     Route: 065
     Dates: end: 2015
  2. JANUMET [Concomitant]
     Active Substance: METFORMIN HYDROCHLORIDE\SITAGLIPTIN PHOSPHATE
     Indication: DIABETES MELLITUS
     Dosage: 50/1000 MG, QD
     Route: 065
  3. BISOPROLOL [Concomitant]
     Active Substance: BISOPROLOL
     Indication: CARDIAC DISORDER
     Dosage: 5 MG, QD
     Route: 065
  4. SANDOSTATIN LAR DEPOT [Suspect]
     Active Substance: OCTREOTIDE ACETATE
     Indication: LUNG NEOPLASM MALIGNANT
     Dosage: 20 MG, QMO
     Route: 065
     Dates: start: 201502
  5. NEUROTIN//ACETYLCARNITINE HYDROCHLORIDE [Concomitant]
     Indication: PAIN
     Dosage: 600 MG, TID
     Route: 065
     Dates: end: 2015

REACTIONS (4)
  - Malignant neoplasm progression [Recovering/Resolving]
  - Gastritis [Recovering/Resolving]
  - Off label use [Unknown]
  - Pain [Recovering/Resolving]

NARRATIVE: CASE EVENT DATE: 201505
